FAERS Safety Report 5134724-8 (Version None)
Quarter: 2006Q4

REPORT INFORMATION
  Report Type: 
  Country: None (occurrence: None)
  Receive Date: 20060831
  Receipt Date: 20050907
  Transmission Date: 20070319
  Serious: Yes (Other)
  Sender: FDA-Public Use
  Company Number: 246730

PATIENT
  Age: 74 Year
  Sex: Male

DRUGS (9)
  1. NOVOLIN 70/30 [Suspect]
     Indication: INSULIN-REQUIRING TYPE II DIABETES MELLITUS
     Dosage: UNKNOWN, SUBCUTANEOUS
     Route: 058
  2. ATENOLOL [Concomitant]
  3. GLYNASE [Concomitant]
  4. METFORMIN HCL [Concomitant]
  5. ASPIRIN [Concomitant]
  6. SYNTHROID [Concomitant]
  7. HYDROCHLOROTHIAZIDE [Concomitant]
  8. LIPITOR    /NET/(ATORVASTATIN CALCIUM) [Concomitant]
  9. LISINOPRIL [Concomitant]

REACTIONS (1)
  - BLOOD GLUCOSE DECREASED [None]
